FAERS Safety Report 9876462 (Version 1)
Quarter: 2014Q1

REPORT INFORMATION
  Report Type: Spontaneous
  Country: US (occurrence: None)
  Receive Date: 20140205
  Receipt Date: 20140205
  Transmission Date: 20141002
  Serious: No
  Sender: FDA-Public Use
  Company Number: None

PATIENT
  Age: 58 Year
  Sex: Male
  Weight: 77.6 kg

DRUGS (1)
  1. CETUXIMAB (ERBITUX) (714692) [Suspect]

REACTIONS (7)
  - Stomatitis [None]
  - Dysphagia [None]
  - Dry mouth [None]
  - Decreased appetite [None]
  - Fatigue [None]
  - Lymphocyte count decreased [None]
  - Nausea [None]
